FAERS Safety Report 19147482 (Version 5)
Quarter: 2021Q3

REPORT INFORMATION
  Report Type: Spontaneous
  Country: US (occurrence: US)
  Receive Date: 20210416
  Receipt Date: 20210908
  Transmission Date: 20211014
  Serious: No
  Sender: FDA-Public Use
  Company Number: US-CELGENEUS-USA-20210401606

PATIENT
  Sex: Male

DRUGS (3)
  1. REVLIMID [Suspect]
     Active Substance: LENALIDOMIDE
     Dosage: 20 MILLIGRAM
     Route: 048
     Dates: start: 202109
  2. REVLIMID [Suspect]
     Active Substance: LENALIDOMIDE
     Indication: FOLLICULAR LYMPHOMA
     Dosage: 20 MILLIGRAM
     Route: 048
     Dates: start: 20210311
  3. REVLIMID [Suspect]
     Active Substance: LENALIDOMIDE
     Indication: OFF LABEL USE
     Dosage: 15 MILLIGRAM
     Route: 048
     Dates: start: 202107

REACTIONS (20)
  - Sinus congestion [Not Recovered/Not Resolved]
  - Dry eye [Unknown]
  - Dry skin [Unknown]
  - Lung disorder [Recovered/Resolved]
  - Dyspnoea [Unknown]
  - Dandruff [Not Recovered/Not Resolved]
  - Hot flush [Unknown]
  - Pruritus [Not Recovered/Not Resolved]
  - Insomnia [Unknown]
  - Abdominal pain [Unknown]
  - Nasal dryness [Unknown]
  - Sleep disorder [Unknown]
  - Constipation [Not Recovered/Not Resolved]
  - Fatigue [Not Recovered/Not Resolved]
  - Dry throat [Unknown]
  - Rash [Not Recovered/Not Resolved]
  - Hypoaesthesia [Unknown]
  - Asthma [Unknown]
  - Joint swelling [Unknown]
  - Headache [Unknown]

NARRATIVE: CASE EVENT DATE: 2021
